FAERS Safety Report 17596028 (Version 1)
Quarter: 2020Q1

REPORT INFORMATION
  Report Type: Report from Study
  Country: None (occurrence: US)
  Receive Date: 20200330
  Receipt Date: 20200330
  Transmission Date: 20200409
  Serious: Yes (Other)
  Sender: FDA-Public Use
  Company Number: US-ABBVIE-19K-163-3173700-00

PATIENT
  Age: 41 Year
  Sex: Male
  Weight: 76.27 kg

DRUGS (1)
  1. HUMIRA [Suspect]
     Active Substance: ADALIMUMAB
     Indication: CROHN^S DISEASE
     Route: 058
     Dates: end: 201712

REACTIONS (3)
  - Small intestinal perforation [Unknown]
  - Nasopharyngitis [Not Recovered/Not Resolved]
  - Gastrointestinal procedural complication [Unknown]

NARRATIVE: CASE EVENT DATE: 201712
